FAERS Safety Report 9401368 (Version 1)
Quarter: 2013Q3

REPORT INFORMATION
  Report Type: Spontaneous
  Country: CN (occurrence: CN)
  Receive Date: 20130715
  Receipt Date: 20130715
  Transmission Date: 20140515
  Serious: Yes (Other)
  Sender: FDA-Public Use
  Company Number: CN-BAXTER-2013BAX026729

PATIENT
  Age: 72 Year
  Sex: Male
  Weight: 84.5 kg

DRUGS (5)
  1. 5% GLUCOSE INJECTION [Suspect]
     Indication: ADJUVANT THERAPY
     Route: 042
     Dates: start: 20120402, end: 20120402
  2. POTASSIUM CHLORIDE [Suspect]
     Indication: ADJUVANT THERAPY
     Route: 042
     Dates: start: 20120402, end: 20120402
  3. NOVOLIN R [Suspect]
     Indication: ADJUVANT THERAPY
     Dosage: 4 U
     Route: 042
     Dates: start: 20120402, end: 20120402
  4. PHENERGAN [Suspect]
     Indication: CHILLS
     Route: 030
  5. PHENERGAN [Suspect]
     Indication: BODY TEMPERATURE INCREASED

REACTIONS (2)
  - Chills [Recovered/Resolved]
  - Body temperature increased [Recovered/Resolved]
